FAERS Safety Report 7354443-7 (Version None)
Quarter: 2011Q1

REPORT INFORMATION
  Report Type: 
  Country: None (occurrence: None)
  Receive Date: 20110316
  Receipt Date: 20110223
  Transmission Date: 20110831
  Serious: Yes (Hospitalization)
  Sender: FDA-Public Use
  Company Number: US-BAYER-201038916NA

PATIENT
  Sex: Female
  Weight: 75.283 kg

DRUGS (44)
  1. UNCODEABLE ^UNCLASSIFIABLE^ [Concomitant]
  2. FLONASE [Concomitant]
  3. TIGAN [Concomitant]
  4. CYCLOBENZAPRINE [Concomitant]
  5. MEPERIDINE/PROMETHAZINE [Concomitant]
  6. HYDROCODONE BITARTRATE AND ACETAMINOPHEN [Concomitant]
  7. UNCODEABLE ^UNCLASSIFIABLE^ [Concomitant]
  8. UNCODEABLE ^UNCLASSIFIABLE^ [Concomitant]
  9. RELACON-DM [Concomitant]
  10. TAZORAC [Concomitant]
  11. OMEPRAZOLE [Concomitant]
  12. UNCODEABLE ^UNCLASSIFIABLE^ [Concomitant]
  13. ATUSS MS [Concomitant]
  14. ALLEGRA D 24 HOUR [Concomitant]
  15. CITALOPRAM HYDROBROMIDE [Concomitant]
  16. PROPOXYPHENE NAPSYLATE W/ ACETAMINOPHEN [Concomitant]
  17. UNCODEABLE ^UNCLASSIFIABLE^ [Concomitant]
  18. CEPHADYN [Concomitant]
  19. FLAGYL [Concomitant]
  20. ANCEF [Concomitant]
  21. PHENERGAN [Concomitant]
  22. IBUPROFEN [Concomitant]
  23. DOXYCYCLINE [Concomitant]
  24. CEPHALEXIN [Concomitant]
  25. VERSED [Concomitant]
  26. UNCODEABLE ^UNCLASSIFIABLE^ [Concomitant]
  27. SKELAXIN [Concomitant]
  28. ALBUTEROL [Concomitant]
  29. LEXAPRO [Concomitant]
  30. AMOXICILLIN [Concomitant]
  31. ASTELIN [Concomitant]
  32. DIAZEPAM [Concomitant]
  33. FENTANYL [Concomitant]
  34. ZOLOFT [Concomitant]
  35. ZELNORM [Concomitant]
  36. YAZ [Suspect]
  37. DIPRIVAN [Concomitant]
  38. ZEMURON [Concomitant]
  39. DEMEROL [Concomitant]
  40. ZYRTEC-D 12 HOUR [Concomitant]
  41. YAZ [Suspect]
     Indication: ORAL CONTRACEPTION
     Dosage: UNK
     Route: 048
     Dates: start: 20070518, end: 20091101
  42. YAZ [Suspect]
     Indication: PREMENSTRUAL SYNDROME
  43. MORPHINE [Concomitant]
  44. UNCODEABLE ^UNCLASSIFIABLE^ [Concomitant]

REACTIONS (4)
  - ABDOMINAL PAIN [None]
  - CHOLECYSTITIS [None]
  - DYSKINESIA [None]
  - ADHESION [None]
